FAERS Safety Report 6983057-3 (Version None)
Quarter: 2010Q3

REPORT INFORMATION
  Report Type: 
  Country: None (occurrence: None)
  Receive Date: 20100914
  Receipt Date: 20100601
  Transmission Date: 20110219
  Serious: No
  Sender: FDA-Public Use
  Company Number: US-PFIZER INC-2010069574

PATIENT
  Sex: Female
  Weight: 94.331 kg

DRUGS (7)
  1. LYRICA [Suspect]
     Indication: DIABETIC NEUROPATHY
     Dosage: 75 MG, 2X/DAY
     Route: 048
  2. LISINOPRIL [Concomitant]
     Indication: HYPERTENSION
     Dosage: UNK
  3. METFORMIN HYDROCHLORIDE/SITAGLIPTIN [Concomitant]
     Indication: DIABETES MELLITUS
     Dosage: UNK
  4. AMITRIPTYLINE [Concomitant]
     Indication: SLEEP DISORDER
     Dosage: UNK
  5. CLONIDINE [Concomitant]
     Indication: SLEEP DISORDER
     Dosage: UNK
  6. RAMIPRIL [Concomitant]
     Dosage: UNK
  7. GLIMEPIRIDE [Concomitant]
     Dosage: UNK, DAILY

REACTIONS (1)
  - MUSCULOSKELETAL STIFFNESS [None]
